FAERS Safety Report 7486177-2 (Version None)
Quarter: 2011Q2

REPORT INFORMATION
  Report Type: 
  Country: None (occurrence: None)
  Receive Date: 20110517
  Receipt Date: 20110415
  Transmission Date: 20111010
  Serious: Yes (Other)
  Sender: FDA-Public Use
  Company Number: US-BAYER-2010-001736

PATIENT
  Sex: Female
  Weight: 68.027 kg

DRUGS (8)
  1. YAZ [Suspect]
     Indication: CONTRACEPTION
     Dosage: UNK
     Dates: start: 20060901, end: 20080101
  2. SINGULAIR [Concomitant]
     Dosage: 10 MG, QD
     Route: 048
  3. ALBUTEROL [Concomitant]
     Indication: DYSPNOEA
  4. LOESTRIN FE 1/20 [Concomitant]
  5. YASMIN [Suspect]
     Indication: CONTRACEPTION
     Dosage: UNK
     Dates: start: 20060901, end: 20080101
  6. ZYRTEC [Concomitant]
     Dosage: 10 MG, QD
     Route: 048
  7. ALBUTEROL [Concomitant]
     Indication: WHEEZING
     Dosage: 90 ?G, 1-2 PUFFS AS NEED
     Route: 048
  8. TERCONAZOLE [Concomitant]

REACTIONS (5)
  - INJURY [None]
  - GALLBLADDER POLYP [None]
  - GALLBLADDER DISORDER [None]
  - DEFORMITY [None]
  - PAIN [None]
